FAERS Safety Report 4340043-X (Version None)
Quarter: 2004Q2

REPORT INFORMATION
  Report Type: 
  Country: None (occurrence: None)
  Receive Date: 20040416
  Receipt Date: 20040109
  Transmission Date: 20050107
  Serious: Yes (Other)
  Sender: FDA-Public Use
  Company Number: US-ROCHE-355789

PATIENT
  Age: 76 Year
  Sex: Female
  Weight: 64.9 kg

DRUGS (2)
  1. XELODA [Suspect]
     Indication: BREAST CANCER
     Dosage: ONE DOSE GIVEN AT 3 AM, ANOTHER AT 4 PM.
     Route: 048
     Dates: start: 20031202, end: 20031217
  2. UNSPECIFIED DRUGS [Concomitant]

REACTIONS (1)
  - STOOL ANALYSIS ABNORMAL [None]
